FAERS Safety Report 8567145-6 (Version None)
Quarter: 2012Q3

REPORT INFORMATION
  Report Type: 
  Country: None (occurrence: None)
  Receive Date: 20120803
  Receipt Date: 20111202
  Transmission Date: 20120928
  Serious: No
  Sender: FDA-Public Use
  Company Number: US-ABBOTT-11P-163-0880640-00

PATIENT
  Sex: Male

DRUGS (10)
  1. NIASPAN [Suspect]
     Indication: BLOOD CHOLESTEROL
     Dosage: 500MG DAILY
     Dates: end: 20110501
  2. ASPIRIN [Concomitant]
     Indication: CARDIAC DISORDER
     Dosage: 81MG DAILY
  3. NIASPAN [Suspect]
     Dosage: 500MG DAILY
  4. CITALOPRAM HYDROBROMIDE [Concomitant]
     Indication: ANXIETY
  5. PRAVASTATIN [Concomitant]
     Indication: BLOOD CHOLESTEROL
  6. LISINOPRIL [Concomitant]
     Indication: HYPERTENSION
  7. ALPRAZOLAM [Concomitant]
     Indication: STRESS
  8. METOPROLOL TARTRATE [Concomitant]
     Indication: BLOOD PRESSURE
  9. PLAVIX [Concomitant]
     Indication: STENT PLACEMENT
  10. CITALOPRAM HYDROBROMIDE [Concomitant]
     Indication: STRESS

REACTIONS (4)
  - BLOOD GLUCOSE INCREASED [None]
  - FLUSHING [None]
  - PRURITUS [None]
  - ERYTHEMA [None]
